FAERS Safety Report 4983075-0 (Version None)
Quarter: 2006Q2

REPORT INFORMATION
  Report Type: 
  Country: None (occurrence: None)
  Receive Date: 20060420
  Receipt Date: 20060411
  Transmission Date: 20061013
  Serious: Yes (Other)
  Sender: FDA-Public Use
  Company Number: 163-21880-06030234

PATIENT
  Age: 77 Year
  Sex: Female

DRUGS (2)
  1. REVLIMID [Suspect]
     Indication: MYELODYSPLASTIC SYNDROME
     Dosage: 10 MG QD ORAL
     Route: 048
     Dates: start: 20060210
  2. EXJADE (DEFERASIROX) [Concomitant]

REACTIONS (6)
  - EPISTAXIS [None]
  - GASTROINTESTINAL HAEMORRHAGE [None]
  - GENITAL HAEMORRHAGE [None]
  - HAEMOGLOBIN DECREASED [None]
  - THROMBOCYTOPENIA [None]
  - WHITE BLOOD CELL COUNT DECREASED [None]
